FAERS Safety Report 6495218-0 (Version None)
Quarter: 2009Q4

REPORT INFORMATION
  Report Type: 
  Country: None (occurrence: None)
  Receive Date: 20091214
  Receipt Date: 20090515
  Transmission Date: 20100525
  Serious: No
  Sender: FDA-Public Use
  Company Number: US-BRISTOL-MYERS SQUIBB COMPANY-14624548

PATIENT
  Age: 55 Year
  Sex: Female

DRUGS (11)
  1. ABILIFY [Suspect]
     Indication: MAJOR DEPRESSION
     Dosage: ON 12MAY09 DOSE DECREASED TO 2.5MG
     Dates: start: 20090511
  2. ZOLOFT [Concomitant]
  3. BUSPAR [Concomitant]
  4. INDERAL [Concomitant]
  5. VICODIN [Concomitant]
  6. ATARAX [Concomitant]
  7. FLEXERIL [Concomitant]
  8. BENADRYL [Concomitant]
  9. CLARITIN [Concomitant]
  10. TYLENOL (CAPLET) [Concomitant]
  11. ASPIRIN [Concomitant]

REACTIONS (3)
  - DYSKINESIA [None]
  - MYALGIA [None]
  - TREMOR [None]
